FAERS Safety Report 4799742-8 (Version None)
Quarter: 2005Q4

REPORT INFORMATION
  Report Type: 
  Country: None (occurrence: None)
  Receive Date: 20051011
  Receipt Date: 20051011
  Transmission Date: 20060501
  Serious: Yes (Hospitalization)
  Sender: FDA-Public Use
  Company Number: None

PATIENT
  Sex: Male

DRUGS (2)
  1. LANTUS [Suspect]
     Indication: DIABETES MELLITUS
     Dosage: [PRIOR TO ADMISSION]
  2. REGULAR INSULIN [Suspect]
     Indication: DIABETES MELLITUS
     Dosage: [PRIOR TO ADMISSION]

REACTIONS (1)
  - DEPRESSED LEVEL OF CONSCIOUSNESS [None]
